FAERS Safety Report 7903333-7 (Version None)
Quarter: 2011Q4

REPORT INFORMATION
  Report Type: 
  Country: None (occurrence: None)
  Receive Date: 20111109
  Receipt Date: 20111107
  Transmission Date: 20120403
  Serious: No
  Sender: FDA-Public Use
  Company Number: US-PFIZER INC-2011272928

PATIENT
  Sex: Female

DRUGS (1)
  1. LYRICA [Suspect]
     Indication: PAIN
     Dosage: 50 MG, DAILY
     Dates: start: 20111101

REACTIONS (3)
  - PALPITATIONS [None]
  - SOMNOLENCE [None]
  - DRUG INEFFECTIVE [None]
